FAERS Safety Report 15204465 (Version 1)
Quarter: 2018Q3

REPORT INFORMATION
  Report Type: Spontaneous
  Country: US (occurrence: US)
  Receive Date: 20180726
  Receipt Date: 20180726
  Transmission Date: 20181010
  Serious: No
  Sender: FDA-Public Use
  Company Number: US-BAUSCH-BL-2018-019343

PATIENT
  Sex: Female

DRUGS (2)
  1. BESIVANCE [Suspect]
     Active Substance: BESIFLOXACIN
     Indication: OFF LABEL USE
  2. BESIVANCE [Suspect]
     Active Substance: BESIFLOXACIN
     Indication: PREOPERATIVE CARE
     Route: 047
     Dates: start: 20180708, end: 20180708

REACTIONS (6)
  - Ocular hyperaemia [Not Recovered/Not Resolved]
  - Lacrimation increased [Recovering/Resolving]
  - Headache [Recovering/Resolving]
  - Eye discharge [Recovering/Resolving]
  - Off label use [Recovered/Resolved]
  - Foreign body sensation in eyes [Recovering/Resolving]

NARRATIVE: CASE EVENT DATE: 20180708
